FAERS Safety Report 5873376-6 (Version None)
Quarter: 2008Q3

REPORT INFORMATION
  Report Type: 
  Country: None (occurrence: None)
  Receive Date: 20080908
  Receipt Date: 20080908
  Transmission Date: 20090109
  Serious: Yes (Other)
  Sender: FDA-Public Use
  Company Number: None

PATIENT
  Age: 74 Year
  Sex: Male
  Weight: 67.586 kg

DRUGS (1)
  1. HEPARIN [Suspect]
     Indication: COAGULOPATHY
     Dates: start: 20070830, end: 20071015

REACTIONS (8)
  - DIABETIC COMPLICATION [None]
  - DIALYSIS [None]
  - GENERAL PHYSICAL HEALTH DETERIORATION [None]
  - NAUSEA [None]
  - POSTOPERATIVE RENAL FAILURE [None]
  - PULMONARY OEDEMA [None]
  - VOMITING [None]
  - WEIGHT DECREASED [None]
